FAERS Safety Report 5751427-7 (Version None)
Quarter: 2008Q2

REPORT INFORMATION
  Report Type: 
  Country: None (occurrence: None)
  Receive Date: 20080528
  Receipt Date: 20080519
  Transmission Date: 20081010
  Serious: Yes (Death)
  Sender: FDA-Public Use
  Company Number: US-ALLERGAN-0805458US

PATIENT
  Sex: Female
  Weight: 7.7 kg

DRUGS (5)
  1. BOTOX [Suspect]
     Indication: MUSCLE SPASTICITY
     Dosage: 100 UNITS, SINGLE
     Route: 030
     Dates: start: 20080424, end: 20080424
  2. PHENOBARBITAL TAB [Concomitant]
  3. BACLOFEN [Concomitant]
  4. ZANTAC [Concomitant]
  5. REGLAN [Concomitant]

REACTIONS (1)
  - RESPIRATORY ARREST [None]
